FAERS Safety Report 11764504 (Version 1)
Quarter: 2015Q4

REPORT INFORMATION
  Report Type: Spontaneous
  Country: US (occurrence: US)
  Receive Date: 20151120
  Receipt Date: 20151120
  Transmission Date: 20160304
  Serious: No
  Sender: FDA-Public Use
  Company Number: US-ELI_LILLY_AND_COMPANY-US201305009484

PATIENT
  Sex: Female

DRUGS (2)
  1. FORTEO [Suspect]
     Active Substance: TERIPARATIDE
     Dosage: UNK UNK, QD
  2. FORTEO [Suspect]
     Active Substance: TERIPARATIDE
     Indication: OSTEOPENIA
     Dosage: UNK UNK, QD
     Dates: start: 201301

REACTIONS (6)
  - Anxiety [Unknown]
  - Off label use [Unknown]
  - Injury [Unknown]
  - Incorrect dose administered [Unknown]
  - Medication error [Unknown]
  - Drug dose omission [Unknown]
